FAERS Safety Report 5991659-6 (Version None)
Quarter: 2008Q4

REPORT INFORMATION
  Report Type: 
  Country: None (occurrence: None)
  Receive Date: 20081211
  Receipt Date: 20081201
  Transmission Date: 20090506
  Serious: Yes (Death)
  Sender: FDA-Public Use
  Company Number: FR-BAXTER-2008BH013300

PATIENT
  Age: 72 Year
  Sex: Female

DRUGS (13)
  1. ENDOXAN BAXTER [Suspect]
     Indication: RHEUMATOID ARTHRITIS
     Route: 042
     Dates: start: 20080730, end: 20080730
  2. ORENCIA [Suspect]
     Indication: RHEUMATOID ARTHRITIS
     Route: 042
     Dates: start: 20080221, end: 20080325
  3. CORTANCYL [Concomitant]
     Route: 048
     Dates: start: 20070101
  4. PROZAC [Concomitant]
     Route: 048
  5. MEDIATENSYL [Concomitant]
     Route: 048
  6. MINOCIN [Concomitant]
     Route: 048
     Dates: start: 20070101, end: 20080501
  7. FERROUS SULFATE TAB [Concomitant]
     Route: 048
  8. OROCAL D(3) [Concomitant]
     Route: 048
  9. MOPRAL [Concomitant]
  10. PREVISCAN [Concomitant]
  11. ISOPTIN [Concomitant]
  12. LEXOMIL [Concomitant]
  13. CORTANCYL [Concomitant]
     Indication: RHEUMATOID ARTHRITIS
     Dates: start: 20050401

REACTIONS (1)
  - CHRONIC OBSTRUCTIVE PULMONARY DISEASE [None]
